FAERS Safety Report 5012218-8 (Version None)
Quarter: 2006Q2

REPORT INFORMATION
  Report Type: 
  Country: None (occurrence: None)
  Receive Date: 20060525
  Receipt Date: 20060525
  Transmission Date: 20061013
  Serious: Yes (Hospitalization)
  Sender: FDA-Public Use
  Company Number: None

PATIENT
  Sex: Female

DRUGS (9)
  1. ULTRAM [Suspect]
     Indication: BACK PAIN
     Dosage: 50 MG   1 TAB   ONE DOSE   ORAL
     Route: 048
     Dates: start: 20050830
  2. IBUPROFEN [Concomitant]
  3. VYTORIN [Concomitant]
  4. ASPIRIN [Concomitant]
  5. MAXZIDE [Concomitant]
  6. LOPRESSOR [Concomitant]
  7. POTASSIUM CHLORIDE [Concomitant]
  8. ESTRADIOL [Concomitant]
  9. AMBIEN [Concomitant]

REACTIONS (4)
  - DIZZINESS [None]
  - HYPOAESTHESIA [None]
  - NAUSEA [None]
  - VOMITING [None]
